FAERS Safety Report 10783473 (Version 1)
Quarter: 2015Q1

REPORT INFORMATION
  Report Type: Spontaneous
  Country: US (occurrence: US)
  Receive Date: 20150210
  Receipt Date: 20150210
  Transmission Date: 20150721
  Serious: Yes (Hospitalization)
  Sender: FDA-Public Use
  Company Number: US-PURDUE PHARMA-USA-2014-0118900

PATIENT
  Age: 87 Year
  Sex: Male

DRUGS (3)
  1. PERI-COLACE [Suspect]
     Active Substance: CASANTHRANOL\DOCUSATE SODIUM
     Indication: CONSTIPATION
     Dosage: 1 TABLET, DAILY
     Route: 048
     Dates: start: 20141102
  2. PERI-COLACE [Suspect]
     Active Substance: CASANTHRANOL\DOCUSATE SODIUM
     Dosage: 1 TABLET, BID
     Route: 048
     Dates: start: 20141102
  3. COLACE [Suspect]
     Active Substance: DOCUSATE SODIUM
     Indication: CONSTIPATION
     Dosage: 1 CAPSL, UNK
     Route: 048
     Dates: start: 201411

REACTIONS (7)
  - Faeces hard [Unknown]
  - Drug ineffective [Unknown]
  - Abdominal distension [Unknown]
  - Bladder disorder [Unknown]
  - Unevaluable event [Unknown]
  - Abdominal pain lower [Unknown]
  - Constipation [Unknown]

NARRATIVE: CASE EVENT DATE: 201411
